FAERS Safety Report 4807316-5 (Version None)
Quarter: 2005Q4

REPORT INFORMATION
  Report Type: 
  Country: None (occurrence: None)
  Receive Date: 20051020
  Receipt Date: 20051020
  Transmission Date: 20060501
  Serious: Yes (Other)
  Sender: FDA-Public Use
  Company Number: None

PATIENT
  Age: 57 Year
  Sex: Male

DRUGS (7)
  1. ALTEPLASE [Suspect]
     Indication: CATHETER RELATED COMPLICATION
     Dosage: 2MG ONCE 10AM
     Dates: start: 20050621
  2. TYLENOL W/ CODEINE NO. 3 [Concomitant]
  3. ASPIRIN [Concomitant]
  4. LASIX [Concomitant]
  5. INSULIN [Concomitant]
  6. FLAGYL [Concomitant]
  7. OMEPRAZOLE [Concomitant]

REACTIONS (4)
  - DYSPNOEA [None]
  - HYPERHIDROSIS [None]
  - HYPERTENSION [None]
  - TACHYCARDIA [None]
